FAERS Safety Report 23741744 (Version 2)
Quarter: 2024Q2

REPORT INFORMATION
  Report Type: Spontaneous
  Country: CN (occurrence: None)
  Receive Date: 20240415
  Receipt Date: 20240516
  Transmission Date: 20240716
  Serious: Yes (Hospitalization, Other)
  Sender: FDA-Public Use
  Company Number: CN-Unichem Pharmaceuticals (USA) Inc-UCM202404-000366

PATIENT
  Age: 52 Year
  Sex: Female

DRUGS (1)
  1. AMLODIPINE [Suspect]
     Active Substance: AMLODIPINE BESYLATE
     Indication: Product used for unknown indication
     Dosage: 90 STANDARD 5 MG TABLETS

REACTIONS (15)
  - Liver injury [Recovered/Resolved]
  - Ascites [Recovered/Resolved]
  - Distributive shock [Unknown]
  - Cardiac failure high output [Unknown]
  - Pulmonary hypertension [Unknown]
  - Right ventricular dysfunction [Unknown]
  - Vascular resistance systemic decreased [Recovered/Resolved]
  - Transaminases increased [Recovered/Resolved]
  - Blood bilirubin increased [Recovered/Resolved]
  - Acute kidney injury [Recovered/Resolved]
  - Tachypnoea [Recovered/Resolved]
  - Venous oxygen saturation decreased [Recovered/Resolved]
  - Hepatitis [Recovered/Resolved]
  - Toxicity to various agents [Unknown]
  - Overdose [Unknown]
